FAERS Safety Report 12246570 (Version 2)
Quarter: 2016Q2

REPORT INFORMATION
  Report Type: Spontaneous
  Country: CA (occurrence: CA)
  Receive Date: 20160407
  Receipt Date: 20160425
  Transmission Date: 20160815
  Serious: Yes (Hospitalization)
  Sender: FDA-Public Use
  Company Number: CA-WATSON-2016-07172

PATIENT
  Age: 39 Year
  Sex: Female

DRUGS (2)
  1. PREDNISOLONE (UNKNOWN) [Suspect]
     Active Substance: PREDNISOLONE
     Indication: OPTIC NEURITIS
     Dosage: 60 MG, DAILY
     Route: 048
  2. CORTENEMA [Suspect]
     Active Substance: HYDROCORTISONE
     Indication: OPTIC NEURITIS
     Dosage: 150 MG, UNK
     Route: 042

REACTIONS (1)
  - Coronary artery dissection [Recovered/Resolved]
